FAERS Safety Report 5602525-X (Version None)
Quarter: 2008Q1

REPORT INFORMATION
  Report Type: 
  Country: None (occurrence: None)
  Receive Date: 20080125
  Receipt Date: 20080121
  Transmission Date: 20080703
  Serious: Yes (Other)
  Sender: FDA-Public Use
  Company Number: B0502234A

PATIENT
  Age: 40 Year
  Sex: Male

DRUGS (1)
  1. AMOXICILLIN TRIHYDRATE [Suspect]
     Indication: DRUG USE FOR UNKNOWN INDICATION
     Dosage: 750MG THREE TIMES PER DAY
     Route: 048
     Dates: start: 20071007

REACTIONS (3)
  - HAEMORRHAGE SUBCUTANEOUS [None]
  - HEPATIC ENZYME INCREASED [None]
  - MYALGIA [None]
